FAERS Safety Report 8903407 (Version 1)
Quarter: 2012Q4

REPORT INFORMATION
  Report Type: Report from Study
  Country: CA (occurrence: CA)
  Receive Date: 20121113
  Receipt Date: 20121113
  Transmission Date: 20130627
  Serious: Yes (Hospitalization)
  Sender: FDA-Public Use
  Company Number: CA-JNJFOC-20121103470

PATIENT
  Age: 61 Year
  Sex: Male
  Weight: 87 kg

DRUGS (4)
  1. REMICADE [Suspect]
     Indication: CROHN^S DISEASE
     Route: 042
     Dates: start: 20080918
  2. IMURAN [Concomitant]
     Route: 048
  3. NORVASC [Concomitant]
     Route: 048
  4. LIPITOR [Concomitant]
     Route: 048

REACTIONS (1)
  - Appendicectomy [Unknown]
